FAERS Safety Report 14360837 (Version 1)
Quarter: 2018Q1

REPORT INFORMATION
  Report Type: Spontaneous
  Country: US (occurrence: US)
  Receive Date: 20180107
  Receipt Date: 20180107
  Transmission Date: 20180509
  Serious: No
  Sender: FDA-Public Use
  Company Number: US-TEVA-2017-US-841571

PATIENT

DRUGS (1)
  1. BUPRENORPHINE. [Suspect]
     Active Substance: BUPRENORPHINE

REACTIONS (6)
  - Skin reaction [Unknown]
  - Application site discharge [Unknown]
  - Pruritus [Unknown]
  - Skin burning sensation [Unknown]
  - Skin disorder [Unknown]
  - Pain [Unknown]
